FAERS Safety Report 10932808 (Version 1)
Quarter: 2015Q1

REPORT INFORMATION
  Report Type: Spontaneous
  Country: US (occurrence: None)
  Receive Date: 20150319
  Receipt Date: 20150319
  Transmission Date: 20150721
  Serious: No
  Sender: FDA-Public Use
  Company Number: 2015CT000014

PATIENT
  Age: 43 Year
  Sex: Female
  Weight: 75.75 kg

DRUGS (11)
  1. HCTZ [Concomitant]
     Active Substance: HYDROCHLOROTHIAZIDE
  2. GLIPIZIDE. [Concomitant]
     Active Substance: GLIPIZIDE
  3. ZIPRASIDONE [Concomitant]
     Active Substance: ZIPRASIDONE
  4. PANTOPRAZOLE [Concomitant]
     Active Substance: PANTOPRAZOLE SODIUM
  5. KORLYM [Suspect]
     Active Substance: MIFEPRISTONE
     Indication: BENIGN NEOPLASM OF ADRENAL GLAND
     Route: 048
     Dates: start: 201412
  6. PHENYTOIN. [Concomitant]
     Active Substance: PHENYTOIN
  7. HYDROXYZINE [Concomitant]
     Active Substance: HYDROXYZINE\HYDROXYZINE HYDROCHLORIDE
  8. ROBAXIN [Concomitant]
     Active Substance: METHOCARBAMOL
  9. NEURONTIN [Concomitant]
     Active Substance: GABAPENTIN
  10. JANUVIA [Concomitant]
     Active Substance: SITAGLIPTIN PHOSPHATE
  11. ASA [Concomitant]
     Active Substance: ASPIRIN

REACTIONS (6)
  - Inappropriate schedule of drug administration [None]
  - Headache [None]
  - Oedema [None]
  - Asthenia [None]
  - Muscle spasms [None]
  - Nephrolithiasis [None]

NARRATIVE: CASE EVENT DATE: 201501
